FAERS Safety Report 10104231 (Version 3)
Quarter: 2014Q2

REPORT INFORMATION
  Report Type: Spontaneous
  Country: GB (occurrence: GB)
  Receive Date: 20140424
  Receipt Date: 20140518
  Transmission Date: 20141212
  Serious: Yes (Other)
  Sender: FDA-Public Use
  Company Number: GB-BRISTOL-MYERS SQUIBB COMPANY-20672572

PATIENT
  Sex: Male

DRUGS (4)
  1. ABILIFY [Suspect]
     Indication: SCHIZOPHRENIA
     Dosage: DOSE INCREASED ON14FEB2014,DOSE UNIT NOS
     Route: 048
     Dates: start: 20140206
  2. ABILIFY MAINTENA INJECTION [Suspect]
     Indication: SCHIZOPHRENIA
     Dates: start: 20140220
  3. CLONAZEPAM [Concomitant]
  4. FLUPENTIXOL [Concomitant]

REACTIONS (2)
  - Psychotic disorder [Unknown]
  - Agitation [Unknown]
